FAERS Safety Report 4337878-6 (Version None)
Quarter: 2004Q2

REPORT INFORMATION
  Report Type: 
  Country: None (occurrence: None)
  Receive Date: 20040408
  Receipt Date: 20040324
  Transmission Date: 20050107
  Serious: Yes (Hospitalization)
  Sender: FDA-Public Use
  Company Number: JP-JNJFOC-20040305348

PATIENT
  Age: 5 Year
  Sex: Female
  Weight: 12.7 kg

DRUGS (21)
  1. REMICADE [Suspect]
     Indication: CROHN'S DISEASE
     Dosage: 5 MG/KG, INTRAVENOUS
     Route: 042
     Dates: start: 20030626, end: 20030626
  2. REMICADE [Suspect]
     Indication: CROHN'S DISEASE
     Dosage: 5 MG/KG, INTRAVENOUS
     Route: 042
     Dates: start: 20030814, end: 20030814
  3. BIOFERMIN (POWDER) BIOFERMIN [Concomitant]
  4. PREDNISOLONE (POWDER) [Concomitant]
  5. WATER-SOLUBLE HYDROCORTISONE (HYDROCORTISONE) INJECTION [Concomitant]
  6. IMURAN [Concomitant]
  7. SALAZOPYRIN (SULFASALAZINE) POWDER [Concomitant]
  8. FLAGYL (METRONIDAZOLE) POWDER [Concomitant]
  9. DEPAKENE (VALPROATE SODIUM) SYRUP [Concomitant]
  10. GASTER (FAMOTIDINE) POWDER [Concomitant]
  11. URALYT-U (URALYT-U) POWDER [Concomitant]
  12. ATARAX (HYDROXYZINE HYDROCHLORIDE) SYRUP [Concomitant]
  13. BUSCOPAN (HYOSCINE BUTYLBROMIDE) INJECTION [Concomitant]
  14. BUSCOPAN (HYOSCINE BUTYLBROMIDE) INJECTION [Concomitant]
  15. VOLTAREN (DICLOFENAC SODUIM) SUPPOSITORY [Concomitant]
  16. DIAZEPAM [Concomitant]
  17. TOTAL PARENTERAL NUTRITION (POLYVINYL ALCOHOL) [Concomitant]
  18. ENTERAL NUTRITION (SOLUTIONS FOR PARENTERAL NUTRITION) [Concomitant]
  19. RHEUMATREX [Concomitant]
  20. ATARAX P (HYDROXYZINE HYDROCHLORIDE) INJECTION [Concomitant]
  21. ELENTAL (ELENTAL) [Concomitant]

REACTIONS (11)
  - ALANINE AMINOTRANSFERASE INCREASED [None]
  - ASPARTATE AMINOTRANSFERASE INCREASED [None]
  - BLOOD PRESSURE INCREASED [None]
  - C-REACTIVE PROTEIN INCREASED [None]
  - CALCULUS URINARY [None]
  - CROHN'S DISEASE [None]
  - DIARRHOEA [None]
  - DISEASE PROGRESSION [None]
  - HAEMATOCHEZIA [None]
  - HEPATIC FUNCTION ABNORMAL [None]
  - PYREXIA [None]
